FAERS Safety Report 9272893 (Version 2)
Quarter: 2013Q2

REPORT INFORMATION
  Report Type: Report from Study
  Country: US (occurrence: US)
  Receive Date: 20130506
  Receipt Date: 20130531
  Transmission Date: 20140414
  Serious: Yes (Hospitalization)
  Sender: FDA-Public Use
  Company Number: US-ACTELION-A-US2013-82658

PATIENT
  Age: 50 Year
  Sex: Female

DRUGS (2)
  1. TRACLEER [Suspect]
     Indication: PULMONARY ARTERIAL HYPERTENSION
     Dosage: UNK
     Route: 048
  2. ACETAMINOPHEN [Suspect]

REACTIONS (5)
  - Angioedema [Recovering/Resolving]
  - Oropharyngeal swelling [Recovering/Resolving]
  - Swollen tongue [Recovering/Resolving]
  - Syncope [Recovering/Resolving]
  - Rash erythematous [Recovering/Resolving]
